FAERS Safety Report 11657068 (Version 1)
Quarter: 2015Q4

REPORT INFORMATION
  Report Type: Spontaneous
  Country: BE (occurrence: BE)
  Receive Date: 20151023
  Receipt Date: 20151023
  Transmission Date: 20160304
  Serious: Yes (Other)
  Sender: FDA-Public Use
  Company Number: BE-MYLANLABS-2015M1036105

PATIENT

DRUGS (3)
  1. FLUOROURACIL. [Suspect]
     Active Substance: FLUOROURACIL
     Indication: COLORECTAL CANCER METASTATIC
     Route: 065
  2. FOLINIC ACID [Suspect]
     Active Substance: LEUCOVORIN
     Indication: COLORECTAL CANCER METASTATIC
     Route: 065
  3. OXALIPLATIN. [Suspect]
     Active Substance: OXALIPLATIN
     Indication: COLORECTAL CANCER METASTATIC
     Dosage: 12 CYCLES
     Route: 065

REACTIONS (7)
  - Gastrointestinal hypomotility [Recovering/Resolving]
  - Toxicity to various agents [Unknown]
  - Portal hypertension [Unknown]
  - Weight decreased [Recovering/Resolving]
  - Venoocclusive liver disease [Unknown]
  - Polyneuropathy [Unknown]
  - Decreased appetite [Recovering/Resolving]
